FAERS Safety Report 23295757 (Version 1)
Quarter: 2023Q4

REPORT INFORMATION
  Report Type: Spontaneous
  Country: US (occurrence: None)
  Receive Date: 20231213
  Receipt Date: 20231213
  Transmission Date: 20240110
  Serious: Yes (Other)
  Sender: FDA-Public Use
  Company Number: None

PATIENT
  Sex: Male

DRUGS (2)
  1. IMATINIB MESYLATE [Suspect]
     Active Substance: IMATINIB MESYLATE
     Dosage: 400 MG ORAL??TAKE 1 TABLET BY MOUTH DAILY WITH A LARGE GLASS OF WATER. YOU MAY DISSOLVE IN WATER OR
     Route: 048
     Dates: start: 20210122
  2. ELIQUIS TAB 5MG [Concomitant]

REACTIONS (2)
  - Surgery [None]
  - Therapy interrupted [None]
